FAERS Safety Report 9856373 (Version 1)
Quarter: 2014Q1

REPORT INFORMATION
  Report Type: Spontaneous
  Country: US (occurrence: US)
  Receive Date: 20140130
  Receipt Date: 20140130
  Transmission Date: 20141002
  Serious: No
  Sender: FDA-Public Use
  Company Number: US-PFIZER INC-2014026302

PATIENT
  Age: 46 Year
  Sex: Female

DRUGS (15)
  1. ZOLOFT [Suspect]
     Dosage: UNK
  2. EFFEXOR XR [Suspect]
     Dosage: UNK
  3. GEODON [Suspect]
     Dosage: UNK
  4. FELDENE [Suspect]
     Dosage: UNK
  5. NEURONTIN [Suspect]
     Dosage: UNK
  6. LYRICA [Suspect]
     Dosage: UNK
  7. REQUIP [Suspect]
     Dosage: UNK
  8. TRAZODONE HYDROCHLORIDE [Suspect]
     Dosage: UNK
  9. FLUOXETINE HYDROCHLORIDE [Suspect]
     Dosage: UNK
  10. METHADONE [Suspect]
     Dosage: UNK
  11. FLEXERIL [Suspect]
     Dosage: UNK
  12. PAXIL [Suspect]
     Dosage: UNK
  13. ZANAFLEX [Suspect]
     Dosage: UNK
  14. ABILIFY [Suspect]
     Dosage: UNK
  15. CELEXA [Suspect]
     Dosage: UNK

REACTIONS (1)
  - Drug hypersensitivity [Unknown]
